FAERS Safety Report 8976555 (Version 1)
Quarter: 2012Q4

REPORT INFORMATION
  Report Type: 
  Country: US (occurrence: US)
  Receive Date: 20121220
  Receipt Date: 20121220
  Transmission Date: 20130627
  Serious: Yes (Other)
  Sender: FDA-Public Use
  Company Number: CHPA2012US025283

PATIENT
  Age: 57 Year
  Sex: Male

DRUGS (1)
  1. THERAPEUTIC MINERAL ICE [Suspect]
     Indication: MYALGIA
     Dosage: Unk, PRN
     Route: 061
     Dates: start: 1991

REACTIONS (2)
  - Tooth fracture [Unknown]
  - Expired drug administered [Unknown]
